FAERS Safety Report 16643241 (Version 1)
Quarter: 2019Q3

REPORT INFORMATION
  Report Type: Spontaneous
  Country: US (occurrence: US)
  Receive Date: 20190729
  Receipt Date: 20190729
  Transmission Date: 20191004
  Serious: Yes (Other)
  Sender: FDA-Public Use
  Company Number: US-AKORN PHARMACEUTICALS-2019AKN01565

PATIENT
  Age: 14 Year
  Sex: Male

DRUGS (1)
  1. MYORISAN [Suspect]
     Active Substance: ISOTRETINOIN
     Dosage: UNK
     Dates: start: 20190111, end: 20190210

REACTIONS (1)
  - Limb operation [Unknown]

NARRATIVE: CASE EVENT DATE: 201901
